FAERS Safety Report 7899006-X (Version None)
Quarter: 2011Q4

REPORT INFORMATION
  Report Type: 
  Country: None (occurrence: None)
  Receive Date: 20111107
  Receipt Date: 20111027
  Transmission Date: 20120403
  Serious: Yes (Other)
  Sender: FDA-Public Use
  Company Number: US-ASTRAZENECA-2011SE65456

PATIENT
  Sex: Male

DRUGS (1)
  1. CRESTOR [Suspect]
     Route: 048

REACTIONS (4)
  - RENAL FAILURE [None]
  - HYPERTENSION [None]
  - GLUCOSE TOLERANCE IMPAIRED [None]
  - CARDIAC FAILURE CONGESTIVE [None]
